FAERS Safety Report 19155697 (Version 3)
Quarter: 2021Q2

REPORT INFORMATION
  Report Type: Spontaneous
  Country: IT (occurrence: IT)
  Receive Date: 20210419
  Receipt Date: 20210604
  Transmission Date: 20210717
  Serious: Yes (Other)
  Sender: FDA-Public Use
  Company Number: IT-BAYER-2021-124395

PATIENT
  Age: 60 Year
  Sex: Female

DRUGS (6)
  1. CIPROXIN 500 MG [Interacting]
     Active Substance: CIPROFLOXACIN
     Indication: EVIDENCE BASED TREATMENT
  2. PRALSETINIB. [Interacting]
     Active Substance: PRALSETINIB
     Indication: NON-SMALL CELL LUNG CANCER METASTATIC
     Dosage: 200 MG
     Dates: start: 20201112, end: 20201123
  3. PRALSETINIB. [Interacting]
     Active Substance: PRALSETINIB
     Indication: NON-SMALL CELL LUNG CANCER METASTATIC
     Dosage: 300 MG
     Dates: start: 20201124, end: 20201206
  4. PRALSETINIB. [Interacting]
     Active Substance: PRALSETINIB
     Indication: NON-SMALL CELL LUNG CANCER METASTATIC
     Dosage: 400 MG
     Dates: start: 20201207
  5. CIPROXIN 500 MG [Suspect]
     Active Substance: CIPROFLOXACIN
     Indication: PYREXIA
     Dosage: 500 MG, BID
     Dates: start: 20201025, end: 20201105
  6. PRALSETINIB. [Interacting]
     Active Substance: PRALSETINIB
     Indication: NON-SMALL CELL LUNG CANCER METASTATIC
     Dosage: 400 MG
     Dates: start: 20200814, end: 20201029

REACTIONS (5)
  - Asthenia [Recovered/Resolved]
  - Thrombocytopenia [Recovered/Resolved]
  - Potentiating drug interaction [Recovered/Resolved]
  - Febrile neutropenia [Recovered/Resolved]
  - Toxicity to various agents [Recovered/Resolved]

NARRATIVE: CASE EVENT DATE: 20201029
